FAERS Safety Report 11437883 (Version 2)
Quarter: 2015Q4

REPORT INFORMATION
  Report Type: Spontaneous
  Country: SE (occurrence: SE)
  Receive Date: 20150831
  Receipt Date: 20151106
  Transmission Date: 20160304
  Serious: Yes (Other)
  Sender: FDA-Public Use
  Company Number: SE-009507513-1508SWE011670

PATIENT
  Age: 74 Year
  Sex: Female

DRUGS (11)
  1. EZETROL 10 MG TABLETTER [Suspect]
     Active Substance: EZETIMIBE
     Indication: HYPERLIPIDAEMIA
     Dosage: STRENGTH:10 MG, ONCE PER DAY (TOTAL DAILY DOSE 10MG)
     Route: 048
     Dates: start: 20150112, end: 20150722
  2. LASIX [Concomitant]
     Active Substance: FUROSEMIDE
     Route: 048
  3. APROVEL [Concomitant]
     Active Substance: IRBESARTAN
  4. ALVEDON FORTE [Concomitant]
     Dosage: AS NECESSARY
     Route: 048
  5. FELODIPINE. [Concomitant]
     Active Substance: FELODIPINE
  6. ESOMEPRAZOLE [Concomitant]
     Active Substance: ESOMEPRAZOLE
  7. ETALPHA [Concomitant]
     Active Substance: ALFACALCIDOL
     Route: 048
  8. IMOVANE [Concomitant]
     Active Substance: ZOPICLONE
     Dosage: AS NECESSARY
     Route: 048
  9. ATENOLOL ACCORD [Concomitant]
     Route: 048
  10. NATRIUMBIKARBONAT RECIP [Concomitant]
     Route: 048
  11. TAVEGYL [Concomitant]
     Active Substance: CLEMASTINE FUMARATE
     Dosage: AS NECESSARY
     Route: 048

REACTIONS (1)
  - Muscle rupture [Not Recovered/Not Resolved]

NARRATIVE: CASE EVENT DATE: 20150716
